FAERS Safety Report 5682758-7 (Version None)
Quarter: 2008Q1

REPORT INFORMATION
  Report Type: 
  Country: None (occurrence: None)
  Receive Date: 20080326
  Receipt Date: 20080326
  Transmission Date: 20080703
  Serious: Yes (Other)
  Sender: FDA-Public Use
  Company Number: None

PATIENT
  Age: 37 Year
  Sex: Female
  Weight: 54.4316 kg

DRUGS (1)
  1. PAROXETINE HCL [Suspect]
     Indication: DEATH OF RELATIVE
     Dosage: 1 TABLET DAY PO
     Route: 048
     Dates: start: 20040118, end: 20080325

REACTIONS (3)
  - DIZZINESS [None]
  - MALAISE [None]
  - PYREXIA [None]
